FAERS Safety Report 7059850-8 (Version None)
Quarter: 2010Q4

REPORT INFORMATION
  Report Type: 
  Country: None (occurrence: None)
  Receive Date: 20101025
  Receipt Date: 20101011
  Transmission Date: 20110411
  Serious: Yes (Hospitalization)
  Sender: FDA-Public Use
  Company Number: PHHY2010CN68759

PATIENT
  Age: 26 Year
  Sex: Male

DRUGS (1)
  1. CARBAMAZEPINE [Suspect]
     Indication: CONVULSION
     Dosage: 0.3 G, QD
     Route: 048

REACTIONS (8)
  - ANTICONVULSANT DRUG LEVEL INCREASED [None]
  - ATAXIA [None]
  - ELECTROENCEPHALOGRAM ABNORMAL [None]
  - INTENTIONAL OVERDOSE [None]
  - NAUSEA [None]
  - NYSTAGMUS [None]
  - SOMNOLENCE [None]
  - VOMITING [None]
